FAERS Safety Report 4704795-9 (Version None)
Quarter: 2005Q2

REPORT INFORMATION
  Report Type: 
  Country: None (occurrence: None)
  Receive Date: 20050630
  Receipt Date: 20050613
  Transmission Date: 20051028
  Serious: Yes (Hospitalization)
  Sender: FDA-Public Use
  Company Number: 200505120

PATIENT
  Age: 48 Year
  Sex: Male

DRUGS (1)
  1. RESTASIS [Suspect]
     Indication: DRY EYE
     Dosage: 2 DROP BID EYE
     Dates: start: 20040823, end: 20041104

REACTIONS (6)
  - CORNEAL ULCER [None]
  - EYE PAIN [None]
  - HYPOPYON [None]
  - OCULAR HYPERAEMIA [None]
  - SENSATION OF FOREIGN BODY [None]
  - VISUAL ACUITY REDUCED [None]
